FAERS Safety Report 23703878 (Version 4)
Quarter: 2024Q3

REPORT INFORMATION
  Report Type: Spontaneous
  Country: US (occurrence: US)
  Receive Date: 20240403
  Receipt Date: 20240723
  Transmission Date: 20241016
  Serious: Yes (Death, Other)
  Sender: SANDOZ
  Company Number: US-SANDOZ-SDZ2024US035634

PATIENT

DRUGS (1)
  1. ENOXAPARIN SODIUM [Suspect]
     Active Substance: ENOXAPARIN SODIUM
     Indication: Product used for unknown indication
     Dosage: 40 MG/ML UNK, FREQUENCY: PRESCRIBED FOR 13 DAYS/STRENGTH: 40MG PER .4 ML
     Route: 065
     Dates: start: 20210901

REACTIONS (1)
  - Death [Fatal]
